FAERS Safety Report 4717908-X (Version None)
Quarter: 2005Q3

REPORT INFORMATION
  Report Type: 
  Country: None (occurrence: None)
  Receive Date: 20050718
  Receipt Date: 20040812
  Transmission Date: 20060218
  Serious: Yes (Hospitalization)
  Sender: FDA-Public Use
  Company Number: US-JNJFOC-20040603826

PATIENT
  Age: 45 Year
  Sex: Female
  Weight: 66.2252 kg

DRUGS (3)
  1. MOTRIN IB [Suspect]
     Indication: PAIN
     Dosage: 600 MG, 1 IN 4 HOUR, ORAL
     Route: 048
     Dates: start: 20040312, end: 20040501
  2. MOTRIN IB [Suspect]
     Indication: PAIN
     Dosage: CONSIDERABLE AMOUNTS
     Dates: start: 20040411, end: 20040501
  3. VICODIN [Concomitant]

REACTIONS (2)
  - ERYTHEMA MULTIFORME [None]
  - HYPERSENSITIVITY [None]
